FAERS Safety Report 5595491-7 (Version None)
Quarter: 2008Q1

REPORT INFORMATION
  Report Type: 
  Country: None (occurrence: None)
  Receive Date: 20080116
  Receipt Date: 20080116
  Transmission Date: 20080703
  Serious: Yes (Other)
  Sender: FDA-Public Use
  Company Number: None

PATIENT
  Sex: Female
  Weight: 61.2356 kg

DRUGS (3)
  1. LEXAPRO [Suspect]
     Dosage: 1 PILL PER DAY PO QDAY SINCE 7/11/07 ON 5 MG, 10MG 8/3/07
     Route: 048
     Dates: start: 20070711
  2. LEXAPRO [Suspect]
     Dosage: 1 PILL PER DAY PO QDAY SINCE 7/11/07 ON 5 MG, 10MG 8/3/07
     Route: 048
     Dates: start: 20070803
  3. DEXEDRINE [Concomitant]

REACTIONS (4)
  - CONTUSION [None]
  - FAECES DISCOLOURED [None]
  - HAEMORRHAGE [None]
  - MUSCLE INJURY [None]
